FAERS Safety Report 6988414-7 (Version None)
Quarter: 2010Q3

REPORT INFORMATION
  Report Type: 
  Country: None (occurrence: None)
  Receive Date: 20100916
  Receipt Date: 20100901
  Transmission Date: 20110219
  Serious: Yes (Other)
  Sender: FDA-Public Use
  Company Number: US-BAYER-201032642NA

PATIENT
  Sex: Female

DRUGS (3)
  1. CIPRO [Suspect]
     Indication: PRODUCT USED FOR UNKNOWN INDICATION
  2. TEGRETOL-XR [Concomitant]
     Indication: FOETAL ALCOHOL SYNDROME
     Dosage: UNIT DOSE: 400 MG
  3. GEMFIBROZIL [Concomitant]

REACTIONS (1)
  - URINARY TRACT INFECTION [None]
